FAERS Safety Report 4482277-X (Version None)
Quarter: 2004Q4

REPORT INFORMATION
  Report Type: 
  Country: None (occurrence: None)
  Receive Date: 20041022
  Receipt Date: 20041012
  Transmission Date: 20050328
  Serious: Yes (Hospitalization, Other)
  Sender: FDA-Public Use
  Company Number: GB-JNJFOC-20041001535

PATIENT
  Sex: Male

DRUGS (3)
  1. DAKTARIN [Suspect]
     Route: 061
  2. DAKTARIN [Suspect]
     Route: 061
  3. MYCIL [Concomitant]
     Route: 061

REACTIONS (6)
  - BLISTER [None]
  - DIZZINESS [None]
  - ERYTHEMA [None]
  - LOCALISED SKIN REACTION [None]
  - OEDEMA PERIPHERAL [None]
  - SWELLING [None]
